FAERS Safety Report 5078335-1 (Version None)
Quarter: 2006Q3

REPORT INFORMATION
  Report Type: 
  Country: None (occurrence: None)
  Receive Date: 20060811
  Receipt Date: 20060809
  Transmission Date: 20061208
  Serious: Yes (Life-Threatening, Hospitalization)
  Sender: FDA-Public Use
  Company Number: PHNU2006DE02741

PATIENT
  Age: 67 Year
  Sex: Female

DRUGS (1)
  1. LEPONEX [Suspect]
     Indication: ALCOHOLIC PSYCHOSIS
     Dosage: 200 MG/DAY
     Route: 048

REACTIONS (5)
  - ELECTROCARDIOGRAM QT CORRECTED INTERVAL PROLONGED [None]
  - ELECTROMECHANICAL DISSOCIATION [None]
  - LIFE SUPPORT [None]
  - RESUSCITATION [None]
  - VENTRICULAR FIBRILLATION [None]
